FAERS Safety Report 5386833-6 (Version None)
Quarter: 2007Q3

REPORT INFORMATION
  Report Type: 
  Country: None (occurrence: None)
  Receive Date: 20070713
  Receipt Date: 20070713
  Transmission Date: 20080115
  Serious: Yes (Death)
  Sender: FDA-Public Use
  Company Number: US-ROXANE LABORATORIES, INC-2007-BP-17323RO

PATIENT
  Sex: Female

DRUGS (4)
  1. METHADONE HCL [Suspect]
     Indication: DRUG WITHDRAWAL MAINTENANCE THERAPY
  2. REBIF [Suspect]
     Indication: MULTIPLE SCLEROSIS
     Route: 058
     Dates: start: 20060127, end: 20070616
  3. ANTIHYPERTENSIVE MEDICATION [Concomitant]
     Indication: HYPERTENSION
  4. ANTIDEPREESANT MEDICATION [Concomitant]
     Indication: DEPRESSION

REACTIONS (1)
  - DRUG TOXICITY [None]
